FAERS Safety Report 12614997 (Version 1)
Quarter: 2016Q3

REPORT INFORMATION
  Report Type: Spontaneous
  Country: US (occurrence: US)
  Receive Date: 20160802
  Receipt Date: 20160802
  Transmission Date: 20161109
  Serious: No
  Sender: FDA-Public Use
  Company Number: US-PERRIGO-15US010765

PATIENT
  Sex: Male

DRUGS (2)
  1. MINOXIDIL. [Suspect]
     Active Substance: MINOXIDIL
     Indication: PRODUCT USED FOR UNKNOWN INDICATION
     Dosage: 1 ML, BID
     Route: 061
     Dates: start: 20150928, end: 20151011
  2. MINOXIDIL. [Suspect]
     Active Substance: MINOXIDIL
     Dosage: 0.5 ML, SINGLE
     Route: 061
     Dates: start: 20151012, end: 20151012

REACTIONS (1)
  - Underdose [Recovered/Resolved]

NARRATIVE: CASE EVENT DATE: 20151012
